FAERS Safety Report 18152213 (Version 2)
Quarter: 2020Q3

REPORT INFORMATION
  Report Type: Spontaneous
  Country: NZ (occurrence: NZ)
  Receive Date: 20200814
  Receipt Date: 20200917
  Transmission Date: 20201103
  Serious: Yes (Death, Other)
  Sender: FDA-Public Use
  Company Number: NZ-MYLANLABS-2020M1071976

PATIENT
  Sex: Male

DRUGS (1)
  1. CLOZARIL [Suspect]
     Active Substance: CLOZAPINE
     Indication: SCHIZOPHRENIA
     Dosage: UNK
     Route: 048
     Dates: start: 20200525, end: 202008

REACTIONS (4)
  - Dementia [Unknown]
  - Drug ineffective [Unknown]
  - Head injury [Unknown]
  - Death [Fatal]

NARRATIVE: CASE EVENT DATE: 2020
